FAERS Safety Report 9310557 (Version 2)
Quarter: 2013Q3

REPORT INFORMATION
  Report Type: Spontaneous
  Country: US (occurrence: US)
  Receive Date: 20130527
  Receipt Date: 20130828
  Transmission Date: 20140515
  Serious: Yes (Other)
  Sender: FDA-Public Use
  Company Number: US-PFIZER INC-2013161049

PATIENT
  Age: 43 Year
  Sex: Female
  Weight: 58.05 kg

DRUGS (1)
  1. CHANTIX [Suspect]
     Dosage: UNK

REACTIONS (5)
  - Suicidal ideation [Unknown]
  - Hallucination [Unknown]
  - Nightmare [Unknown]
  - Abnormal dreams [Unknown]
  - Fear [Unknown]
